FAERS Safety Report 15926790 (Version 1)
Quarter: 2019Q1

REPORT INFORMATION
  Report Type: Spontaneous
  Country: US (occurrence: US)
  Receive Date: 20190206
  Receipt Date: 20190206
  Transmission Date: 20190417
  Serious: Yes (Hospitalization)
  Sender: FDA-Public Use
  Company Number: None

PATIENT
  Sex: Female

DRUGS (9)
  1. IBUPROFEN. [Concomitant]
     Active Substance: IBUPROFEN
  2. METOPROLOL. [Concomitant]
     Active Substance: METOPROLOL
  3. DULOXETINE. [Concomitant]
     Active Substance: DULOXETINE
  4. PRAVASTATIN. [Concomitant]
     Active Substance: PRAVASTATIN
  5. LORATIDINE [Concomitant]
     Active Substance: LORATADINE
  6. CYMBALTA [Concomitant]
     Active Substance: DULOXETINE HYDROCHLORIDE
  7. HUMIRA [Suspect]
     Active Substance: ADALIMUMAB
     Indication: RHEUMATOID ARTHRITIS
     Dosage: ?          OTHER FREQUENCY:ONCE EVERY WEEK;?
     Route: 058
     Dates: start: 20161129
  8. METFORMIN [Concomitant]
     Active Substance: METFORMIN HYDROCHLORIDE
  9. DICLOFEN [Concomitant]
     Active Substance: DICLOFENAC SODIUM

REACTIONS (2)
  - Condition aggravated [None]
  - Therapy cessation [None]
